FAERS Safety Report 20859792 (Version 3)
Quarter: 2022Q4

REPORT INFORMATION
  Report Type: Spontaneous
  Country: US (occurrence: US)
  Receive Date: 20220523
  Receipt Date: 20221212
  Transmission Date: 20230113
  Serious: Yes (Other)
  Sender: FDA-Public Use
  Company Number: US-GILEAD-2022-0582543

PATIENT
  Age: 42 Year
  Sex: Male
  Weight: 79.37 kg

DRUGS (30)
  1. VIREAD [Suspect]
     Active Substance: TENOFOVIR DISOPROXIL FUMARATE
     Indication: HIV infection
     Dosage: UNK
     Route: 048
     Dates: start: 2006, end: 2008
  2. TRUVADA [Suspect]
     Active Substance: EMTRICITABINE\TENOFOVIR DISOPROXIL FUMARATE
     Indication: HIV infection
     Dosage: UNK
     Route: 048
     Dates: start: 2006
  3. TRUVADA [Suspect]
     Active Substance: EMTRICITABINE\TENOFOVIR DISOPROXIL FUMARATE
     Dosage: UNK
     Route: 048
     Dates: start: 2008, end: 201206
  4. CRIXIVAN [Concomitant]
     Active Substance: INDINAVIR SULFATE
  5. EPIVIR [Concomitant]
     Active Substance: LAMIVUDINE
  6. INTELENCE [Concomitant]
     Active Substance: ETRAVIRINE
  7. ISENTRESS [Concomitant]
     Active Substance: RALTEGRAVIR POTASSIUM
  8. REYATAZ [Concomitant]
     Active Substance: ATAZANAVIR SULFATE
  9. ZERIT [Concomitant]
     Active Substance: STAVUDINE
  10. ULTRAM [Concomitant]
     Active Substance: TRAMADOL HYDROCHLORIDE
  11. ZOVIRAX [Concomitant]
     Active Substance: ACYCLOVIR
  12. TRIAMCINOLONE [Concomitant]
     Active Substance: TRIAMCINOLONE
  13. NYSTATIN [Concomitant]
     Active Substance: NYSTATIN
  14. VALTREX [Concomitant]
     Active Substance: VALACYCLOVIR HYDROCHLORIDE
  15. LORATADINE [Concomitant]
     Active Substance: LORATADINE
  16. CIPRO [Concomitant]
     Active Substance: CIPROFLOXACIN HYDROCHLORIDE
  17. DIFLUCAN [Concomitant]
     Active Substance: FLUCONAZOLE
  18. VIAGRA [Concomitant]
     Active Substance: SILDENAFIL CITRATE
  19. ZITHROMAX [Concomitant]
     Active Substance: AZITHROMYCIN DIHYDRATE
  20. ENALAPRIL [Concomitant]
     Active Substance: ENALAPRIL
  21. ADVIL [Concomitant]
     Active Substance: IBUPROFEN
  22. XYLOMETAZOLINE HYDROCHLORIDE [Concomitant]
     Active Substance: XYLOMETAZOLINE HYDROCHLORIDE
  23. LOTRIMIN [Concomitant]
     Active Substance: CLOTRIMAZOLE
  24. LOPERAMIDE [Concomitant]
     Active Substance: LOPERAMIDE
  25. PAROMOMYCIN [Concomitant]
     Active Substance: PAROMOMYCIN
  26. REGLAN [Concomitant]
     Active Substance: METOCLOPRAMIDE HYDROCHLORIDE
  27. LOTRISONE [Concomitant]
     Active Substance: BETAMETHASONE DIPROPIONATE\CLOTRIMAZOLE
  28. LORATADINE [Concomitant]
     Active Substance: LORATADINE
  29. GABAPENTIN [Concomitant]
     Active Substance: GABAPENTIN
  30. LEVOTHYROXINE [Concomitant]
     Active Substance: LEVOTHYROXINE

REACTIONS (12)
  - Chronic kidney disease [Not Recovered/Not Resolved]
  - Renal injury [Unknown]
  - Emotional distress [Not Recovered/Not Resolved]
  - Anhedonia [Not Recovered/Not Resolved]
  - Anxiety [Not Recovered/Not Resolved]
  - Pain [Not Recovered/Not Resolved]
  - Micturition urgency [Not Recovered/Not Resolved]
  - Hypertension [Not Recovered/Not Resolved]
  - Blood creatinine increased [Not Recovered/Not Resolved]
  - Drug resistance [Unknown]
  - Back pain [Not Recovered/Not Resolved]
  - Renal pain [Not Recovered/Not Resolved]

NARRATIVE: CASE EVENT DATE: 20070101
